FAERS Safety Report 8916096 (Version 2)
Quarter: 2012Q4

REPORT INFORMATION
  Report Type: Report from Study
  Country: JP (occurrence: JP)
  Receive Date: 20121120
  Receipt Date: 20121126
  Transmission Date: 20130627
  Serious: Yes (Hospitalization, Other)
  Sender: FDA-Public Use
  Company Number: PHHY2012JP060188

PATIENT
  Age: 57 Year
  Sex: Male
  Weight: 53 kg

DRUGS (33)
  1. LEPONEX / CLOZARIL [Suspect]
     Indication: SCHIZOPHRENIA, DISORGANISED TYPE
     Dosage: 12.5 mg, daily
     Route: 048
     Dates: start: 20110621, end: 20110621
  2. LEPONEX / CLOZARIL [Suspect]
     Dosage: 25 mg, daily
     Route: 048
     Dates: start: 20110622, end: 20110624
  3. LEPONEX / CLOZARIL [Suspect]
     Dosage: 50 mg, daily
     Route: 048
     Dates: start: 20110625, end: 20110627
  4. LEPONEX / CLOZARIL [Suspect]
     Dosage: 75 mg, daily
     Route: 048
     Dates: start: 20110628, end: 20110629
  5. LEPONEX / CLOZARIL [Suspect]
     Dosage: 100 mg, daily
     Route: 048
     Dates: start: 20110630, end: 20110701
  6. LEPONEX / CLOZARIL [Suspect]
     Dosage: 125 mg, daily
     Route: 048
     Dates: start: 20110702, end: 20110705
  7. LEPONEX / CLOZARIL [Suspect]
     Dosage: 150 mg,daily
     Route: 048
     Dates: start: 20110706, end: 20110708
  8. LEPONEX / CLOZARIL [Suspect]
     Dosage: 175 mg, daily
     Route: 048
     Dates: start: 20110709, end: 20110712
  9. LEPONEX / CLOZARIL [Suspect]
     Dosage: 200 mg, daily
     Route: 048
     Dates: start: 20110713, end: 20110717
  10. LEPONEX / CLOZARIL [Suspect]
     Dosage: 250 mg, daily
     Route: 048
     Dates: start: 20110718, end: 20110722
  11. LEPONEX / CLOZARIL [Suspect]
     Dosage: 300 mg, daily
     Route: 048
     Dates: start: 20110723, end: 20110728
  12. LEPONEX / CLOZARIL [Suspect]
     Dosage: 400 mg, daily
     Route: 048
     Dates: start: 20110729, end: 20110809
  13. LEPONEX / CLOZARIL [Suspect]
     Dosage: 500 mg, daily
     Route: 048
     Dates: start: 20110810, end: 20110816
  14. LEPONEX / CLOZARIL [Suspect]
     Dosage: 600 mg, daily
     Route: 048
     Dates: start: 20110817, end: 20110830
  15. LEPONEX / CLOZARIL [Suspect]
     Dosage: 500 mg, daily
     Route: 048
     Dates: start: 20110831, end: 20120414
  16. LEPONEX / CLOZARIL [Suspect]
     Dosage: 550 mg, daily
     Route: 048
     Dates: start: 20120419, end: 20120502
  17. LEPONEX / CLOZARIL [Suspect]
     Dosage: 600 mg, daily
     Route: 048
     Dates: start: 20120303, end: 20121109
  18. HALOPERIDOL [Suspect]
     Dosage: 20 mg, daily
     Route: 048
     Dates: start: 20110621, end: 20110712
  19. HALOPERIDOL [Suspect]
     Dosage: 12 mg, daily
     Route: 048
     Dates: start: 20110713, end: 20110719
  20. HALOPERIDOL [Suspect]
     Dosage: 4 mg, daily
     Route: 048
     Dates: start: 20110720, end: 20110726
  21. HALOPERIDOL [Suspect]
     Dosage: 12 mg, daily
     Route: 048
     Dates: start: 20110727, end: 20110816
  22. HALOPERIDOL [Suspect]
     Dosage: 6 mg, daily
     Route: 048
     Dates: start: 20110817, end: 20110818
  23. HALOPERIDOL [Suspect]
     Dosage: 12 mg, daily
     Route: 048
     Dates: start: 20110819, end: 20110830
  24. HALOPERIDOL [Suspect]
     Dosage: 20 mg, daily
     Route: 048
     Dates: start: 20110831, end: 20110921
  25. HALOPERIDOL [Suspect]
     Dosage: 21 mg, daily
     Route: 048
     Dates: start: 20111222, end: 20120418
  26. HALOPERIDOL [Suspect]
     Dosage: 18 mg,daily
     Route: 048
     Dates: start: 20120419, end: 20120502
  27. HALOPERIDOL [Suspect]
     Dosage: 21 mg,daily
     Route: 048
     Dates: start: 20120503
  28. ESTAZOLAM [Concomitant]
     Indication: SCHIZOPHRENIA, DISORGANISED TYPE
     Dosage: 2 mg, UNK
     Route: 048
     Dates: start: 20111222
  29. LORAZEPAM [Concomitant]
     Indication: SCHIZOPHRENIA, DISORGANISED TYPE
     Dosage: 1.5 mg, UNK
     Route: 048
     Dates: start: 20111222
  30. MAGNESIUM OXIDE [Concomitant]
     Dosage: 2000 mg, UNK
     Route: 048
     Dates: start: 20111222
  31. BIPERIDEN HYDROCHLORIDE [Concomitant]
     Dosage: 6 mg, UNK
     Dates: start: 20111222
  32. FAMOTIDINE [Concomitant]
     Dosage: 20 mg, UNK
     Route: 048
     Dates: start: 20111222
  33. MONOAMMONIUM [Concomitant]
     Indication: HEPATIC FUNCTION ABNORMAL
     Dosage: 75 mg, UNK
     Route: 048
     Dates: start: 20111222, end: 20120222

REACTIONS (3)
  - Hepatic function abnormal [Recovered/Resolved]
  - Haematemesis [Unknown]
  - Gastrointestinal haemorrhage [Unknown]
